FAERS Safety Report 14661116 (Version 10)
Quarter: 2021Q1

REPORT INFORMATION
  Report Type: Spontaneous
  Country: US (occurrence: US)
  Receive Date: 20180320
  Receipt Date: 20210330
  Transmission Date: 20210419
  Serious: Yes (Hospitalization, Other)
  Sender: FDA-Public Use
  Company Number: US-PFIZER INC-2017339180

PATIENT
  Age: 67 Year
  Sex: Female

DRUGS (1)
  1. XELJANZ XR [Suspect]
     Active Substance: TOFACITINIB CITRATE
     Indication: RHEUMATOID ARTHRITIS
     Dosage: 11 MG, DAILY (TAKE 1 TABLET DAILY)

REACTIONS (11)
  - Thrombosis [Unknown]
  - Lower limb fracture [Unknown]
  - Back pain [Not Recovered/Not Resolved]
  - Gait disturbance [Unknown]
  - Localised infection [Unknown]
  - Pain [Unknown]
  - Fatigue [Unknown]
  - Illness [Unknown]
  - Ankle fracture [Unknown]
  - Escherichia infection [Unknown]
  - Malaise [Unknown]
